FAERS Safety Report 5658480-X (Version None)
Quarter: 2008Q1

REPORT INFORMATION
  Report Type: 
  Country: None (occurrence: None)
  Receive Date: 20080310
  Receipt Date: 20070224
  Transmission Date: 20080703
  Serious: No
  Sender: FDA-Public Use
  Company Number: US-BAYER-200710607BCC

PATIENT
  Age: 27 Year
  Sex: Male
  Weight: 91 kg

DRUGS (1)
  1. ALEVE [Suspect]
     Indication: PARTNER STRESS
     Dosage: TOTAL DAILY DOSE: 4400 MG  UNIT DOSE: 220 MG
     Route: 048
     Dates: start: 20070224

REACTIONS (2)
  - NO ADVERSE EVENT [None]
  - OVERDOSE [None]
